FAERS Safety Report 17283130 (Version 1)
Quarter: 2020Q1

REPORT INFORMATION
  Report Type: Spontaneous
  Country: RO (occurrence: RO)
  Receive Date: 20200117
  Receipt Date: 20200117
  Transmission Date: 20200409
  Serious: Yes (Other)
  Sender: FDA-Public Use
  Company Number: RO-009507513-2001ROM004164

PATIENT
  Age: 80 Year

DRUGS (2)
  1. PEMETREXED DISODIUM [Suspect]
     Active Substance: PEMETREXED DISODIUM
     Indication: ADENOCARCINOMA
     Dosage: UNK
     Dates: start: 201906
  2. KEYTRUDA [Suspect]
     Active Substance: PEMBROLIZUMAB
     Indication: ADENOCARCINOMA
     Dosage: UNK
     Dates: start: 201906

REACTIONS (1)
  - Febrile neutropenia [Not Recovered/Not Resolved]
